FAERS Safety Report 7660116-3 (Version None)
Quarter: 2011Q3

REPORT INFORMATION
  Report Type: 
  Country: None (occurrence: None)
  Receive Date: 20110805
  Receipt Date: 20110722
  Transmission Date: 20111222
  Serious: Yes (Other)
  Sender: FDA-Public Use
  Company Number: PHHY2011US66728

PATIENT
  Sex: Female

DRUGS (3)
  1. HORMONES [Suspect]
     Dosage: UNK UKN, UNK
  2. RECLAST [Suspect]
     Indication: OSTEOPOROSIS
     Dosage: 5 MG, UNK (1 PER YEAR)
     Route: 042
     Dates: start: 20070101
  3. ZOMETA [Suspect]
     Dosage: 4 MG, UNK
     Dates: start: 20040101

REACTIONS (6)
  - FEELING ABNORMAL [None]
  - BONE LOSS [None]
  - ASTHMA [None]
  - BALANCE DISORDER [None]
  - FRACTURE [None]
  - EMPHYSEMA [None]
